FAERS Safety Report 8296553-6 (Version None)
Quarter: 2012Q2

REPORT INFORMATION
  Report Type: 
  Country: None (occurrence: None)
  Receive Date: 20120418
  Receipt Date: 20120412
  Transmission Date: 20120825
  Serious: Yes (Other)
  Sender: FDA-Public Use
  Company Number: CA-ROCHE-GNE319185

PATIENT
  Sex: Female

DRUGS (1)
  1. XOLAIR [Suspect]
     Indication: ASTHMA
     Dosage: 300 MG, Q4W
     Route: 058
     Dates: start: 20100211

REACTIONS (7)
  - PAIN IN EXTREMITY [None]
  - INSOMNIA [None]
  - SWELLING [None]
  - FATIGUE [None]
  - PNEUMONIA [None]
  - PYELONEPHRITIS [None]
  - PULMONARY GRANULOMA [None]
